FAERS Safety Report 17311502 (Version 1)
Quarter: 2020Q1

REPORT INFORMATION
  Report Type: Spontaneous
  Country: US (occurrence: US)
  Receive Date: 20200123
  Receipt Date: 20200123
  Transmission Date: 20200409
  Serious: Yes (Other)
  Sender: FDA-Public Use
  Company Number: US-ROCHE-2330040

PATIENT
  Age: 15 Year
  Sex: Female

DRUGS (30)
  1. AMPHOTERICIN B, LIPOSOME [Concomitant]
     Active Substance: AMPHOTERICIN B
     Route: 042
  2. AMPHOTERICIN [Concomitant]
     Active Substance: AMPHOTERICIN B
     Route: 045
  3. ACICLOVIR [Concomitant]
     Active Substance: ACYCLOVIR
     Indication: PROPHYLAXIS
     Route: 048
  4. TOBRAMYCIN. [Concomitant]
     Active Substance: TOBRAMYCIN
  5. LINEZOLID. [Concomitant]
     Active Substance: LINEZOLID
     Route: 048
  6. ITRACONAZOLE. [Concomitant]
     Active Substance: ITRACONAZOLE
     Route: 048
  7. IMIPENEM AND CILASTATIN [Concomitant]
     Active Substance: CILASTATIN SODIUM\IMIPENEM
     Route: 042
  8. TIGECYCLINE. [Concomitant]
     Active Substance: TIGECYCLINE
     Route: 042
  9. LINEZOLID. [Concomitant]
     Active Substance: LINEZOLID
     Route: 042
  10. COLISTIN [Concomitant]
     Active Substance: COLISTIN
     Route: 045
  11. CIPROFLOXACIN. [Concomitant]
     Active Substance: CIPROFLOXACIN
     Route: 042
  12. RITUXIMAB. [Suspect]
     Active Substance: RITUXIMAB
     Indication: PROPHYLAXIS AGAINST TRANSPLANT REJECTION
     Route: 041
  13. CIPROFLOXACIN. [Concomitant]
     Active Substance: CIPROFLOXACIN
     Route: 042
  14. AZITHROMYCIN ANHYDROUS. [Concomitant]
     Active Substance: AZITHROMYCIN ANHYDROUS
  15. RIBAVIRIN. [Concomitant]
     Active Substance: RIBAVIRIN
     Route: 048
  16. MYCOPHENOLATE MOFETIL. [Suspect]
     Active Substance: MYCOPHENOLATE MOFETIL
     Indication: PROPHYLAXIS AGAINST TRANSPLANT REJECTION
     Route: 065
  17. CLOFAZIMINE [Concomitant]
     Active Substance: CLOFAZIMINE
  18. COTRIMOXAZOLE [Concomitant]
     Active Substance: SULFAMETHOXAZOLE\TRIMETHOPRIM
     Indication: ANTIFUNGAL PROPHYLAXIS
  19. MOXIFLOXACIN. [Concomitant]
     Active Substance: MOXIFLOXACIN
  20. NITAZOXANIDE [Concomitant]
     Active Substance: NITAZOXANIDE
     Route: 048
  21. CLARITHROMYCIN. [Concomitant]
     Active Substance: CLARITHROMYCIN
     Route: 048
  22. IVACAFTOR;LUMACAFTOR [Concomitant]
     Active Substance: IVACAFTOR\LUMACAFTOR
  23. POSACONAZOLE [Concomitant]
     Active Substance: POSACONAZOLE
  24. AMIKACIN. [Concomitant]
     Active Substance: AMIKACIN
     Route: 045
  25. TACROLIMUS. [Suspect]
     Active Substance: TACROLIMUS
     Indication: PROPHYLAXIS AGAINST TRANSPLANT REJECTION
     Route: 042
  26. TACROLIMUS. [Suspect]
     Active Substance: TACROLIMUS
     Indication: PROPHYLAXIS AGAINST TRANSPLANT REJECTION
     Route: 048
  27. BEDAQUILINE [Concomitant]
     Active Substance: BEDAQUILINE
  28. AMIKACIN. [Concomitant]
     Active Substance: AMIKACIN
     Route: 042
  29. CLARITROMYCINE [Concomitant]
     Active Substance: CLARITHROMYCIN
     Route: 042
  30. AMIKACIN. [Concomitant]
     Active Substance: AMIKACIN
     Route: 061

REACTIONS (1)
  - Mycobacterial infection [Unknown]
